FAERS Safety Report 7022212-3 (Version None)
Quarter: 2010Q3

REPORT INFORMATION
  Report Type: 
  Country: None (occurrence: None)
  Receive Date: 20100928
  Receipt Date: 20100917
  Transmission Date: 20110219
  Serious: Yes (Life-Threatening, Other)
  Sender: FDA-Public Use
  Company Number: 2010MA002554

PATIENT
  Age: 19 Year
  Sex: Female

DRUGS (14)
  1. ACYCLOVIR TABLETS, 800 MG (PUREPAC) (ACYCLOVIR) [Suspect]
  2. FEVERALL [Suspect]
     Dosage: ;IV
  3. PAREGORIC LIQUID USP (ALPHARMA) (PAREGORIC) [Suspect]
     Dosage: ; IV
     Route: 042
  4. ONDANSETRON [Suspect]
     Dosage: 8 MG;TID; IV
     Route: 042
  5. OMEPRAZOLE [Suspect]
  6. CYCLOSPORINE [Suspect]
  7. ALLOPURINOL [Suspect]
     Dosage: 300 MG;QD; PO
     Route: 048
  8. VORICONAZOLE [Suspect]
     Dosage: 200 MG;BID;PO
     Route: 048
  9. NORETHISTERONE (NORETHISTERONE) [Suspect]
     Dosage: 5 MG;TID; PO
     Route: 048
  10. CASPOFUNGIN ACETATE [Suspect]
     Dosage: 70 MG;QD; IV
     Route: 042
  11. ETOPOPHOS PRESERVATIVE FREE [Suspect]
     Dosage: 4656 MG; IV
     Route: 042
     Dates: start: 20070915, end: 20070915
  12. CHLORPHENIRAMINE MALEATE [Suspect]
     Dosage: 10 MG;QID; IV
     Route: 042
  13. PIPERACILLIN AND TAZOBACTAM [Suspect]
     Dosage: 4.5 MG;TID;IV
     Route: 042
  14. KETALAR [Suspect]
     Indication: PAIN
     Dosage: 4 MG;QH; IV
     Route: 042
     Dates: start: 20070921, end: 20070928

REACTIONS (2)
  - HEPATOTOXICITY [None]
  - VENOOCCLUSIVE DISEASE [None]
